FAERS Safety Report 23597607 (Version 1)
Quarter: 2024Q1

REPORT INFORMATION
  Report Type: Spontaneous
  Country: US (occurrence: None)
  Receive Date: 20240305
  Receipt Date: 20240305
  Transmission Date: 20240409
  Serious: Yes (unspecified)
  Sender: FDA-Public Use
  Company Number: None

PATIENT
  Age: 71 Year
  Sex: Male
  Weight: 99 kg

DRUGS (13)
  1. BRILINTA [Suspect]
     Active Substance: TICAGRELOR
     Indication: Thrombosis prophylaxis
     Dosage: OTHER QUANTITY : 1 TABLET(S);?FREQUENCY : TWICE A DAY;?
     Route: 048
     Dates: start: 20240211, end: 20240223
  2. BRILINTA [Suspect]
     Active Substance: TICAGRELOR
     Indication: Postoperative care
  3. BRILINTA [Suspect]
     Active Substance: TICAGRELOR
     Indication: Coronary arterial stent insertion
  4. METOPROLOL [Concomitant]
     Active Substance: METOPROLOL
  5. LOSARTAN [Concomitant]
     Active Substance: LOSARTAN
  6. ALLOPURINOL [Concomitant]
     Active Substance: ALLOPURINOL
  7. CLOPIDOGREL [Concomitant]
     Active Substance: CLOPIDOGREL BISULFATE
  8. BUPROPION [Concomitant]
     Active Substance: BUPROPION
  9. venaflexine [Concomitant]
  10. TRAZODONE [Concomitant]
     Active Substance: TRAZODONE HYDROCHLORIDE
  11. ASPIRIN [Concomitant]
     Active Substance: ASPIRIN
  12. senior multi vitamin [Concomitant]
  13. CLARITIN [Concomitant]
     Active Substance: LORATADINE

REACTIONS (1)
  - Sleep apnoea syndrome [None]

NARRATIVE: CASE EVENT DATE: 20240221
